FAERS Safety Report 12172572 (Version 1)
Quarter: 2016Q1

REPORT INFORMATION
  Report Type: Spontaneous
  Country: US (occurrence: US)
  Receive Date: 20160311
  Receipt Date: 20160311
  Transmission Date: 20160526
  Serious: Yes (Hospitalization)
  Sender: FDA-Public Use
  Company Number: US-MYLANLABS-2016M1010705

PATIENT

DRUGS (2)
  1. SERTRALINE [Suspect]
     Active Substance: SERTRALINE HYDROCHLORIDE
     Dosage: 100MG DAILY
     Route: 065
  2. SERTRALINE [Suspect]
     Active Substance: SERTRALINE HYDROCHLORIDE
     Indication: MAJOR DEPRESSION
     Dosage: 50MG DAILY; LATER THE DOSE WAS INCREASED TO 100MG DAILY
     Route: 065

REACTIONS (3)
  - Psychotic disorder [Recovering/Resolving]
  - Bipolar I disorder [Recovering/Resolving]
  - Suicidal behaviour [Recovering/Resolving]
